FAERS Safety Report 11614798 (Version 1)
Quarter: 2015Q4

REPORT INFORMATION
  Report Type: Spontaneous
  Country: SE (occurrence: SE)
  Receive Date: 20151009
  Receipt Date: 20151009
  Transmission Date: 20160304
  Serious: Yes (Death, Hospitalization)
  Sender: FDA-Public Use
  Company Number: SE-ROCHE-1643711

PATIENT
  Age: 75 Year
  Sex: Female

DRUGS (1)
  1. MABTHERA [Suspect]
     Active Substance: RITUXIMAB
     Indication: RHEUMATOID ARTHRITIS
     Route: 041
     Dates: start: 2010

REACTIONS (4)
  - Tick-borne viral encephalitis [Fatal]
  - Nausea [Unknown]
  - Vomiting [Unknown]
  - Epilepsy [Unknown]

NARRATIVE: CASE EVENT DATE: 2015
